FAERS Safety Report 14963972 (Version 1)
Quarter: 2018Q2

REPORT INFORMATION
  Report Type: Report from Study
  Country: US (occurrence: US)
  Receive Date: 20180601
  Receipt Date: 20180601
  Transmission Date: 20180711
  Serious: Yes (Life-Threatening)
  Sender: FDA-Public Use
  Company Number: US-B.I. PHARMACEUTICALS,INC./RIDGEFIELD-2018-BI-028484

PATIENT
  Age: 14 Year
  Sex: Male

DRUGS (4)
  1. ATROVENT [Suspect]
     Active Substance: IPRATROPIUM BROMIDE
     Indication: ASTHMA
     Dosage: 250 MG PER DOSE DILUTED WITH 3-ML ISOTONIC SODIUM CHLORIDE SOLUTION
     Route: 065
  2. TERBUTALINE [Suspect]
     Active Substance: TERBUTALINE
     Indication: ASTHMA
     Dosage: 4-6 UG/KG FOLLOWED BY AN INFUSION THAT STARTED AT 0.4 UG/KG/MIN TITRATED TO A MAXIMUM OF 3 UG/KG/MIN
     Route: 042
  3. METHYLPREDNISOLONE. [Concomitant]
     Active Substance: METHYLPREDNISOLONE
     Indication: PRODUCT USED FOR UNKNOWN INDICATION
     Dosage: 2MG/KG PER DOSE AS INITIAL BOLUS FOLLOWED BY IV 0.5 MG/KG PER DOSE EVERY 6 HOURS
     Route: 042
  4. MAGNESIUM SULFATE. [Concomitant]
     Active Substance: MAGNESIUM SULFATE
     Indication: PRODUCT USED FOR UNKNOWN INDICATION
     Dosage: 50 MG/KG PER DOSE IV BOLUSES OVER 30 MINUTES TO A MAXIMUM DOSE OF 2 G
     Route: 042

REACTIONS (3)
  - Blood potassium decreased [Unknown]
  - Sinus tachycardia [Unknown]
  - Hypotension [Unknown]
